FAERS Safety Report 5574390-0 (Version None)
Quarter: 2007Q4

REPORT INFORMATION
  Report Type: 
  Country: None (occurrence: None)
  Receive Date: 20071221
  Receipt Date: 20071211
  Transmission Date: 20080405
  Serious: Yes (Other)
  Sender: FDA-Public Use
  Company Number: 07-002412

PATIENT
  Age: 34 Year
  Sex: Female

DRUGS (2)
  1. FEMCON FE [Suspect]
     Indication: CONTRACEPTION
     Dosage: 0.4/35 MCG, QD, ORAL
     Route: 048
     Dates: start: 20071122, end: 20071210
  2. THYROID THERAPY [Concomitant]

REACTIONS (4)
  - BLOOD THYROID STIMULATING HORMONE ABNORMAL [None]
  - BRAIN OEDEMA [None]
  - NERVE INJURY [None]
  - PAPILLOEDEMA [None]
